FAERS Safety Report 7773235-8 (Version None)
Quarter: 2011Q3

REPORT INFORMATION
  Report Type: 
  Country: None (occurrence: None)
  Receive Date: 20110922
  Receipt Date: 20110912
  Transmission Date: 20111222
  Serious: Yes (Other)
  Sender: FDA-Public Use
  Company Number: BR-ASTRAZENECA-2011SE55553

PATIENT
  Age: 89 Year
  Sex: Female
  Weight: 47 kg

DRUGS (5)
  1. SUSTRATE [Concomitant]
     Dosage: TID
     Route: 048
     Dates: start: 20110101
  2. ATACAND [Suspect]
     Indication: HYPERTENSION
     Route: 048
     Dates: end: 20110101
  3. ATACAND [Suspect]
     Route: 048
     Dates: start: 20110101, end: 20110701
  4. SOMALGIN [Suspect]
     Route: 048
     Dates: end: 20110701
  5. PRAVASTATIN [Concomitant]
     Route: 048

REACTIONS (7)
  - PARAESTHESIA [None]
  - FATIGUE [None]
  - BLOOD PRESSURE INADEQUATELY CONTROLLED [None]
  - WEIGHT DECREASED [None]
  - INAPPROPRIATE SCHEDULE OF DRUG ADMINISTRATION [None]
  - DRUG INEFFECTIVE [None]
  - GASTROINTESTINAL CARCINOMA [None]
